FAERS Safety Report 9007341 (Version 1)
Quarter: 2013Q1

REPORT INFORMATION
  Report Type: Spontaneous
  Country: US (occurrence: US)
  Receive Date: 20130110
  Receipt Date: 20130110
  Transmission Date: 20140127
  Serious: Yes (Death, Life-Threatening, Other)
  Sender: FDA-Public Use
  Company Number: US-009507513-1301USA001590

PATIENT
  Age: 48 Year
  Sex: Male

DRUGS (10)
  1. SINGULAIR [Suspect]
     Dosage: 10 MG, QD
     Route: 048
  2. ADVAIR [Suspect]
     Dosage: 1 PUFF TWICE PER DAY
     Route: 055
  3. ROBITUSSIN-DM [Concomitant]
  4. DOXYCYCLINE [Concomitant]
  5. ALBUTEROL SULFATE [Concomitant]
  6. DECADRON (BENZALKONIUM CHLORIDE (+) DEXAMETHASONE TEBUTATE (+) DEXTROS [Concomitant]
     Route: 030
  7. DUONEB [Concomitant]
     Route: 055
  8. FLONASE [Concomitant]
     Dosage: 4SPR PER DAY
     Route: 045
  9. DEPO-MEDROL [Concomitant]
     Route: 030
  10. XOPENEX [Concomitant]
     Dosage: 1.25 MG, PRN
     Route: 048

REACTIONS (7)
  - Productive cough [Fatal]
  - Nasopharyngitis [Fatal]
  - Lung disorder [Fatal]
  - Dyspnoea [Fatal]
  - Cough [Fatal]
  - Cardiac disorder [Fatal]
  - Asthma [Fatal]
